FAERS Safety Report 4785063-6 (Version None)
Quarter: 2005Q3

REPORT INFORMATION
  Report Type: 
  Country: None (occurrence: None)
  Receive Date: 20050930
  Receipt Date: 20050922
  Transmission Date: 20060218
  Serious: Yes (Hospitalization)
  Sender: FDA-Public Use
  Company Number: FR-ABBOTT-05P-056-0311766-00

PATIENT
  Age: 57 Year
  Sex: Female

DRUGS (4)
  1. DEPAKOTE [Suspect]
     Indication: MANIA
     Route: 048
     Dates: start: 20050814
  2. MOXONIDINE [Concomitant]
     Indication: DRUG USE FOR UNKNOWN INDICATION
     Route: 048
  3. BLOPRESS PLUS [Concomitant]
     Indication: DRUG USE FOR UNKNOWN INDICATION
     Route: 048
  4. DI-GESIC [Concomitant]
     Indication: DRUG USE FOR UNKNOWN INDICATION
     Route: 048

REACTIONS (2)
  - RENAL FAILURE [None]
  - THROMBOCYTOPENIA [None]
